FAERS Safety Report 16963950 (Version 2)
Quarter: 2019Q4

REPORT INFORMATION
  Report Type: Spontaneous
  Country: US (occurrence: US)
  Receive Date: 20191026
  Receipt Date: 20191110
  Transmission Date: 20200122
  Serious: Yes (Other)
  Sender: FDA-Public Use
  Company Number: NVSC2019US015434

PATIENT
  Sex: Female

DRUGS (4)
  1. HUMIRA [Suspect]
     Active Substance: ADALIMUMAB
     Dosage: 40 MG, Q2W (CITRATE FREE)
     Route: 058
     Dates: start: 201909
  2. COSENTYX [Suspect]
     Active Substance: SECUKINUMAB
     Indication: PRODUCT USED FOR UNKNOWN INDICATION
     Dosage: UNK
     Route: 065
     Dates: start: 201904
  3. HUMIRA [Suspect]
     Active Substance: ADALIMUMAB
     Dosage: 40 MG, QW (CITRATE FREE)
     Route: 058
     Dates: start: 201908, end: 2019
  4. HUMIRA [Suspect]
     Active Substance: ADALIMUMAB
     Indication: PSORIATIC ARTHROPATHY
     Dosage: 40 MG (CITRATE FREE)
     Route: 058
     Dates: end: 201903

REACTIONS (5)
  - Secretion discharge [Recovered/Resolved]
  - Drug ineffective [Unknown]
  - Psoriatic arthropathy [Unknown]
  - Therapeutic product effect decreased [Unknown]
  - Mobility decreased [Unknown]

NARRATIVE: CASE EVENT DATE: 2019
